FAERS Safety Report 6621430-3 (Version None)
Quarter: 2010Q1

REPORT INFORMATION
  Report Type: 
  Country: None (occurrence: None)
  Receive Date: 20100309
  Receipt Date: 20100211
  Transmission Date: 20100710
  Serious: No
  Sender: FDA-Public Use
  Company Number: US-BIOGENIDEC-2010BI004868

PATIENT
  Sex: Male

DRUGS (2)
  1. AVONEX [Suspect]
     Indication: MULTIPLE SCLEROSIS
     Route: 030
     Dates: start: 20081202, end: 20091111
  2. AVONEX [Suspect]
     Route: 030
     Dates: start: 20091111

REACTIONS (6)
  - DYSSTASIA [None]
  - GAIT DISTURBANCE [None]
  - HANGOVER [None]
  - HEADACHE [None]
  - INFLUENZA LIKE ILLNESS [None]
  - UNDERDOSE [None]
